FAERS Safety Report 9034616 (Version 4)
Quarter: 2013Q4

REPORT INFORMATION
  Report Type: Spontaneous
  Country: GB (occurrence: None)
  Receive Date: 20130111
  Receipt Date: 20131008
  Transmission Date: 20140711
  Serious: Yes (Hospitalization, Other)
  Sender: FDA-Public Use
  Company Number: AUR-APL-2013-00069

PATIENT
  Age: 58 Year
  Sex: Male

DRUGS (7)
  1. LAMOTRIGINE [Suspect]
     Indication: DEPRESSED MOOD
     Dosage: (100 MG, 1 IN 1D)
     Route: 048
  2. MIRTAZAPINE [Suspect]
     Indication: DEPRESSION
     Dosage: AT NIGHT (45 MG, 1 IN 1 D)
     Route: 048
  3. ARIPIPRAZOLE [Suspect]
     Indication: SCHIZOPHRENIA
     Dosage: (30 MG, 1 IN 1D)
     Route: 048
  4. KWELLS [Suspect]
     Indication: SALIVARY HYPERSECRETION
     Dosage: AT NIGHT
     Route: 060
  5. PROCYCLIDINE [Suspect]
     Indication: EXTRAPYRAMIDAL DISORDER
     Dosage: AT NIGHT
     Route: 048
  6. VENLAFAXINE [Suspect]
     Indication: DEPRESSION
     Dosage: 75 M1IN 1IN1D
     Route: 048
  7. ZAPONEX [Suspect]
     Indication: SCHIZOPHRENIA
     Dosage: ONCE A DAY AT NIGHT
     Route: 048
     Dates: start: 20120806, end: 20120823

REACTIONS (5)
  - Full blood count abnormal [None]
  - Leukopenia [None]
  - Anaemia [None]
  - Neutropenia [None]
  - Platelet count decreased [None]
